FAERS Safety Report 9365666 (Version 1)
Quarter: 2013Q2

REPORT INFORMATION
  Report Type: Spontaneous
  Country: US (occurrence: None)
  Receive Date: 20130624
  Receipt Date: 20130624
  Transmission Date: 20140414
  Serious: Yes (Other)
  Sender: FDA-Public Use
  Company Number: None

PATIENT
  Sex: Female
  Weight: 15.42 kg

DRUGS (1)
  1. MIRALAX [Suspect]
     Indication: CONSTIPATION
     Dosage: CAPFUL
     Route: 048
     Dates: start: 20090101, end: 20130401

REACTIONS (11)
  - Anger [None]
  - Screaming [None]
  - Convulsion [None]
  - Headache [None]
  - Anxiety [None]
  - Lethargy [None]
  - Aggression [None]
  - Obsessive-compulsive disorder [None]
  - Malaise [None]
  - Mood swings [None]
  - Condition aggravated [None]
